FAERS Safety Report 8891350 (Version 1)
Quarter: 2012Q4

REPORT INFORMATION
  Report Type: Spontaneous
  Country: US (occurrence: None)
  Receive Date: 20121105
  Receipt Date: 20121105
  Transmission Date: 20130627
  Serious: No
  Sender: FDA-Public Use
  Company Number: None

PATIENT
  Sex: Female
  Weight: 92.99 kg

DRUGS (2)
  1. METOPROLOL [Suspect]
     Indication: BLOOD PRESSURE HIGH
     Route: 048
  2. LOSARTAN [Suspect]
     Route: 048

REACTIONS (3)
  - Cough [None]
  - Ill-defined disorder [None]
  - Wheezing [None]
